FAERS Safety Report 6158866-3 (Version None)
Quarter: 2009Q2

REPORT INFORMATION
  Report Type: 
  Country: None (occurrence: None)
  Receive Date: 20090415
  Receipt Date: 20090415
  Transmission Date: 20091009
  Serious: No
  Sender: FDA-Public Use
  Company Number: None

PATIENT
  Age: 12 Year
  Sex: Male
  Weight: 72.5755 kg

DRUGS (1)
  1. TRIMETHOPRIM + SULFAMETHOXAZOLE [Suspect]
     Indication: SINUSITIS
     Dosage: 1 TABLET BID FOR 10 DAYS PO
     Route: 048
     Dates: start: 20090403, end: 20090411

REACTIONS (2)
  - DYSURIA [None]
  - RASH [None]
